FAERS Safety Report 7730550-1 (Version None)
Quarter: 2011Q3

REPORT INFORMATION
  Report Type: 
  Country: None (occurrence: None)
  Receive Date: 20110906
  Receipt Date: 20110831
  Transmission Date: 20111222
  Serious: Yes (Other)
  Sender: FDA-Public Use
  Company Number: BR-BAYER-2011-073262

PATIENT
  Age: 19 Year
  Sex: Female
  Weight: 54 kg

DRUGS (7)
  1. ACETAMINOPHEN [Concomitant]
     Indication: PAIN
     Dosage: 42 GTT, PRN
     Route: 048
     Dates: start: 20101201
  2. DIPYRONE TAB [Concomitant]
     Indication: HEADACHE
     Dosage: 42 GTT, PRN
     Route: 048
  3. NEXAVAR [Suspect]
     Indication: HEPATIC NEOPLASM MALIGNANT
     Dosage: 800 MG, DAILY
     Dates: start: 20110319, end: 20110731
  4. DIPYRONE TAB [Concomitant]
     Indication: PAIN
  5. NEXAVAR [Suspect]
     Dosage: DAILY DOSE 600 MG
     Route: 048
     Dates: start: 20110811
  6. OMEPRAZOLE [Concomitant]
     Indication: GASTRITIS
     Dosage: 1 DF, QD
     Route: 048
     Dates: start: 20101101
  7. TRAMADOL HYDROCHLORIDE [Concomitant]
     Indication: ABDOMINAL PAIN
     Dosage: 1 DF, PRN
     Route: 048
     Dates: start: 20110301, end: 20110401

REACTIONS (3)
  - ALOPECIA [None]
  - ENZYME ABNORMALITY [None]
  - DIARRHOEA [None]
